FAERS Safety Report 6085807-X (Version None)
Quarter: 2009Q1

REPORT INFORMATION
  Report Type: 
  Country: None (occurrence: None)
  Receive Date: 20090220
  Receipt Date: 20090209
  Transmission Date: 20090719
  Serious: Yes (Hospitalization)
  Sender: FDA-Public Use
  Company Number: GB-ROCHE-613624

PATIENT
  Sex: Female

DRUGS (4)
  1. ORLISTAT [Suspect]
     Indication: OBESITY
     Route: 048
     Dates: start: 20090109
  2. RAMIPRIL [Concomitant]
     Indication: BLOOD PRESSURE
     Route: 048
  3. SALBUTAMOL [Concomitant]
     Indication: ASTHMA
     Dosage: ROUTE: INHALER, FREQUENCY: 2 PUFFS AS WHEN
     Route: 055
  4. SERETIDE [Concomitant]
     Indication: ASTHMA
     Dosage: ROUTE: INHALER, FREQUENCY: 2 PUFF TWICE DAILY
     Route: 055

REACTIONS (1)
  - CELLULITIS [None]
